FAERS Safety Report 12216993 (Version 1)
Quarter: 2016Q1

REPORT INFORMATION
  Report Type: Spontaneous
  Country: US (occurrence: US)
  Receive Date: 20160329
  Receipt Date: 20160329
  Transmission Date: 20160526
  Serious: Yes (Death, Other)
  Sender: FDA-Public Use
  Company Number: PHEH2016US007037

PATIENT
  Sex: Male

DRUGS (2)
  1. SPRYCEL [Suspect]
     Active Substance: DASATINIB
     Indication: PRODUCT USED FOR UNKNOWN INDICATION
     Dosage: UNK
     Route: 065
     Dates: start: 201311
  2. TASIGNA [Suspect]
     Active Substance: NILOTINIB
     Indication: CHRONIC MYELOID LEUKAEMIA
     Dosage: UNK
     Route: 048
     Dates: start: 201210, end: 201311

REACTIONS (21)
  - Pedal pulse abnormal [Unknown]
  - Insomnia [Unknown]
  - Arteriosclerosis coronary artery [Fatal]
  - Coronary artery stenosis [Fatal]
  - Muscle spasms [Unknown]
  - Arteriosclerosis [Fatal]
  - Peripheral artery stenosis [Fatal]
  - Pain in extremity [Unknown]
  - Cerebral arteriosclerosis [Fatal]
  - Quality of life decreased [Unknown]
  - General physical health deterioration [Unknown]
  - Coronary artery disease [Fatal]
  - Injury [Unknown]
  - Peripheral vascular disorder [Unknown]
  - Muscle tightness [Unknown]
  - Peripheral arterial occlusive disease [Fatal]
  - Peripheral artery occlusion [Unknown]
  - Abasia [Unknown]
  - Cerebral artery stenosis [Fatal]
  - Emotional distress [Unknown]
  - Pain [Unknown]

NARRATIVE: CASE EVENT DATE: 201301
